FAERS Safety Report 17229748 (Version 1)
Quarter: 2020Q1

REPORT INFORMATION
  Report Type: Report from Study
  Country: US (occurrence: US)
  Receive Date: 20200103
  Receipt Date: 20200103
  Transmission Date: 20200409
  Serious: No
  Sender: FDA-Public Use
  Company Number: US-KYOWAKIRIN-2019BKK020748

PATIENT

DRUGS (1)
  1. GRANISETRON [Suspect]
     Active Substance: GRANISETRON
     Indication: PRODUCT USED FOR UNKNOWN INDICATION
     Dosage: UNKNOWN
     Route: 065
     Dates: end: 201911

REACTIONS (4)
  - Feeling abnormal [Unknown]
  - Cognitive disorder [Unknown]
  - Impaired driving ability [Unknown]
  - Aphasia [Unknown]

NARRATIVE: CASE EVENT DATE: 2019
